FAERS Safety Report 8596778-6 (Version None)
Quarter: 2012Q3

REPORT INFORMATION
  Report Type: 
  Country: None (occurrence: None)
  Receive Date: 20120802
  Receipt Date: 20120711
  Transmission Date: 20120928
  Serious: Yes (Other)
  Sender: FDA-Public Use
  Company Number: JPI-P-022818

PATIENT
  Age: 55 Year
  Sex: Female

DRUGS (1)
  1. XYREM [Suspect]
     Indication: PRODUCT USED FOR UNKNOWN INDICATION
     Dosage: 4 GM (2 GM, 2 IN 1 D), ORAL
     Route: 048

REACTIONS (6)
  - FALL [None]
  - FRACTURE [None]
  - CONTUSION [None]
  - PERIORBITAL HAEMATOMA [None]
  - EPISTAXIS [None]
  - LACERATION [None]
